FAERS Safety Report 20724334 (Version 1)
Quarter: 2022Q2

REPORT INFORMATION
  Report Type: Report from Study
  Country: US (occurrence: US)
  Receive Date: 20220419
  Receipt Date: 20220419
  Transmission Date: 20220721
  Serious: Yes (Hospitalization, Other)
  Sender: FDA-Public Use
  Company Number: US-BoehringerIngelheim-2022-BI-160761

PATIENT
  Age: 82 Year
  Sex: Female

DRUGS (2)
  1. OFEV [Suspect]
     Active Substance: NINTEDANIB
     Indication: Idiopathic pulmonary fibrosis
     Route: 048
     Dates: start: 20220315
  2. OFEV [Suspect]
     Active Substance: NINTEDANIB
     Route: 048

REACTIONS (20)
  - Blindness [Unknown]
  - Adverse drug reaction [Unknown]
  - Drug intolerance [Unknown]
  - Gait inability [Unknown]
  - Chest pain [Recovered/Resolved]
  - Headache [Recovered/Resolved]
  - Neck pain [Recovered/Resolved]
  - Pain in jaw [Recovered/Resolved]
  - Gait inability [Recovered/Resolved]
  - Faeces discoloured [Recovered/Resolved]
  - Abdominal pain upper [Unknown]
  - Myalgia [Unknown]
  - Insomnia [Recovering/Resolving]
  - Diarrhoea [Unknown]
  - Abdominal pain [Unknown]
  - Chest pain [Unknown]
  - Pain in jaw [Unknown]
  - Headache [Unknown]
  - Neck pain [Unknown]
  - Faeces discoloured [Unknown]

NARRATIVE: CASE EVENT DATE: 20220301
